FAERS Safety Report 5839038-6 (Version None)
Quarter: 2008Q3

REPORT INFORMATION
  Report Type: 
  Country: None (occurrence: None)
  Receive Date: 20080808
  Receipt Date: 20080801
  Transmission Date: 20090109
  Serious: Yes (Hospitalization, Other)
  Sender: FDA-Public Use
  Company Number: US-GENENTECH-265667

PATIENT
  Sex: Female
  Weight: 71.655 kg

DRUGS (3)
  1. BEVACIZUMAB [Suspect]
     Indication: NON-SMALL CELL LUNG CANCER
     Dosage: 15 MG/KG, Q3W
     Route: 042
  2. PEMETREXED [Suspect]
     Indication: NON-SMALL CELL LUNG CANCER
     Dosage: 500 MG/M2, Q3W
     Route: 042
  3. STEROIDS (UNK INGREDIENTS) [Concomitant]
     Indication: PREMEDICATION
     Dosage: UNK
     Dates: start: 20051001

REACTIONS (2)
  - NEUTROPENIA [None]
  - OSTEOMYELITIS [None]
